FAERS Safety Report 16669761 (Version 1)
Quarter: 2019Q3

REPORT INFORMATION
  Report Type: Report from Study
  Country: US (occurrence: US)
  Receive Date: 20190805
  Receipt Date: 20190805
  Transmission Date: 20191004
  Serious: Yes (Hospitalization)
  Sender: FDA-Public Use
  Company Number: US-GILEAD-2019-0422031

PATIENT
  Age: 9 Year
  Sex: Female

DRUGS (6)
  1. ALBUTEROL [SALBUTAMOL] [Suspect]
     Active Substance: ALBUTEROL
     Indication: CYSTIC FIBROSIS
     Dosage: INHALE 3ML BID AND MAY INCREASE TO EVERY 4 HOURS AS NEEDED
     Dates: start: 20170522
  2. SODIUM CHLORIDE. [Suspect]
     Active Substance: SODIUM CHLORIDE
     Indication: CYSTIC FIBROSIS
     Dosage: 14 ML, BID
     Dates: start: 20170526
  3. AZTREONAM LYSINE [Suspect]
     Active Substance: AZTREONAM LYSINE
     Indication: CYSTIC FIBROSIS
     Dosage: 75 MG, TID
     Dates: start: 20150917
  4. VITAMINS NOS [Suspect]
     Active Substance: VITAMINS
     Indication: CYSTIC FIBROSIS
     Dosage: 1 DOSAGE FORM, QD
     Route: 065
     Dates: start: 20170310
  5. LUPRON DEPOT [Concomitant]
     Active Substance: LEUPROLIDE ACETATE
  6. ORKAMBI [Suspect]
     Active Substance: IVACAFTOR\LUMACAFTOR
     Indication: CYSTIC FIBROSIS
     Dosage: 1 DOSAGE FORM, BID
     Route: 065
     Dates: start: 20171116

REACTIONS (1)
  - Constipation [Unknown]
